FAERS Safety Report 17328958 (Version 1)
Quarter: 2020Q1

REPORT INFORMATION
  Report Type: Spontaneous
  Country: FR (occurrence: FR)
  Receive Date: 20200127
  Receipt Date: 20200127
  Transmission Date: 20200409
  Serious: Yes (Other)
  Sender: FDA-Public Use
  Company Number: FR-MYLANLABS-2020M1008629

PATIENT
  Age: 6 Year
  Sex: Female

DRUGS (7)
  1. URBANYL [Concomitant]
     Active Substance: CLOBAZAM
     Dosage: 10 MILLIGRAM, QD
     Dates: start: 201902
  2. OXCARBAZEPINE. [Suspect]
     Active Substance: OXCARBAZEPINE
     Indication: CSWS SYNDROME
     Dosage: 600 MILLIGRAM, QD
     Dates: start: 201807, end: 201811
  3. KEPPRA [Concomitant]
     Active Substance: LEVETIRACETAM
     Dosage: 600 MILLIGRAM, QD
     Dates: start: 201808
  4. VALPROIC ACID. [Suspect]
     Active Substance: VALPROIC ACID
     Indication: CSWS SYNDROME
     Dosage: 500 MILLIGRAM, QD
     Dates: start: 201803, end: 201808
  5. KEPPRA [Concomitant]
     Active Substance: LEVETIRACETAM
     Dosage: 1000 MILLIGRAM, QD
  6. OSPOLOT [Suspect]
     Active Substance: SULTHIAME
     Dosage: MAINTENANCE DOSAGE
     Route: 048
     Dates: start: 20190815, end: 20190905
  7. OSPOLOT [Suspect]
     Active Substance: SULTHIAME
     Indication: CSWS SYNDROME
     Dosage: INITIAL DOSAGE
     Route: 048
     Dates: start: 20190809, end: 20190814

REACTIONS (6)
  - Asthenia [Recovered/Resolved]
  - Drug ineffective [Unknown]
  - Aggression [Recovered/Resolved]
  - Adverse drug reaction [Unknown]
  - Off label use [Recovered/Resolved]
  - Decreased appetite [Recovered/Resolved]

NARRATIVE: CASE EVENT DATE: 2018
